FAERS Safety Report 5542853-X (Version None)
Quarter: 2007Q4

REPORT INFORMATION
  Report Type: 
  Country: None (occurrence: None)
  Receive Date: 20071123
  Receipt Date: 20070313
  Transmission Date: 20080405
  Serious: Yes (Other)
  Sender: FDA-Public Use
  Company Number: US-JNJFOC-20070303654

PATIENT
  Age: 53 Year
  Sex: Female

DRUGS (2)
  1. LEVAQUIN [Suspect]
     Indication: PNEUMONIA
     Dosage: 500 MG, ORAL
     Route: 048
     Dates: start: 20070312, end: 20070313
  2. COUGH SUPPRESSANT (ANTUSSIN COUGH SYRUP) [Concomitant]

REACTIONS (1)
  - ANAPHYLACTIC SHOCK [None]
